FAERS Safety Report 7704641-5 (Version None)
Quarter: 2011Q3

REPORT INFORMATION
  Report Type: 
  Country: None (occurrence: None)
  Receive Date: 20110823
  Receipt Date: 20110816
  Transmission Date: 20111222
  Serious: Yes (Death, Life-Threatening, Hospitalization)
  Sender: FDA-Public Use
  Company Number: ES-GLAXOSMITHKLINE-B0737149A

PATIENT
  Sex: Male

DRUGS (11)
  1. G-CSF [Concomitant]
     Dates: start: 20101214
  2. CHLORAMBUCIL [Suspect]
     Indication: CHRONIC LYMPHOCYTIC LEUKAEMIA
     Dosage: 35MG EVERY TWO WEEKS
     Route: 048
     Dates: start: 20101124
  3. FLUCONAZOLE [Concomitant]
     Dates: start: 20101212
  4. IPRATROPIUM BROMIDE [Concomitant]
     Dates: start: 20101223
  5. MESALAMINE [Concomitant]
     Dates: start: 20100527
  6. ALLOPURINOL [Concomitant]
     Dates: start: 20101124
  7. NIFEDIPINE [Concomitant]
     Dates: start: 20050218
  8. DOXAZOSIN MESYLATE [Concomitant]
     Dates: start: 20050218
  9. ALBUTEROL [Concomitant]
     Dates: start: 20101223
  10. LEVOFLOXACIN [Concomitant]
     Dates: start: 20101212
  11. OMEPRAZOLE [Concomitant]
     Dates: start: 20101124

REACTIONS (5)
  - LUNG INFECTION [None]
  - NEUTROPENIA [None]
  - SEPSIS [None]
  - PLATELET COUNT DECREASED [None]
  - RESPIRATORY FAILURE [None]
